FAERS Safety Report 4681055-6 (Version None)
Quarter: 2005Q2

REPORT INFORMATION
  Report Type: 
  Country: None (occurrence: None)
  Receive Date: 20050601
  Receipt Date: 20050519
  Transmission Date: 20051028
  Serious: Yes (Disabling, Other)
  Sender: FDA-Public Use
  Company Number: 2005044146

PATIENT
  Age: 79 Year
  Sex: Male
  Weight: 83.9154 kg

DRUGS (4)
  1. LIPITOR [Suspect]
     Indication: LOW DENSITY LIPOPROTEIN INCREASED
     Dosage: 20 MG (20 MG, 1 IN 1 D), ORAL
     Route: 048
     Dates: start: 20031001, end: 20050305
  2. WARFARIN SODIUM [Suspect]
     Indication: CORONARY ARTERIAL STENT INSERTION
     Dosage: 3 MG (3 MG, 1 IN 1 D), ORAL
     Route: 048
  3. COREG [Concomitant]
  4. LISINOPRIL [Concomitant]

REACTIONS (3)
  - CORONARY ARTERIAL STENT INSERTION [None]
  - INCORRECT DOSE ADMINISTERED [None]
  - RHABDOMYOLYSIS [None]
